FAERS Safety Report 9261677 (Version 1)
Quarter: 2013Q2

REPORT INFORMATION
  Report Type: Spontaneous
  Country: CH (occurrence: CH)
  Receive Date: 20130429
  Receipt Date: 20130429
  Transmission Date: 20140414
  Serious: Yes (Hospitalization)
  Sender: FDA-Public Use
  Company Number: CH-PFIZER INC-2013127818

PATIENT
  Age: 84 Year
  Sex: Male
  Weight: 81 kg

DRUGS (15)
  1. ZYVOXID [Suspect]
     Indication: PNEUMONIA BACTERIAL
     Dosage: 600 MG, 2X/DAY
     Route: 041
     Dates: start: 20130301, end: 20130307
  2. MERONEM [Suspect]
     Indication: PNEUMONIA BACTERIAL
     Dosage: 1000 MG, 2X/DAY
     Route: 041
     Dates: start: 20130228, end: 20130307
  3. NOVALGIN [Concomitant]
     Dosage: 1000 MG, 3X/DAY
     Route: 041
     Dates: end: 20130305
  4. PANTOZOL [Concomitant]
     Dosage: 40 MG, 1X/DAY
     Route: 041
     Dates: end: 20130305
  5. PARACETAMOL [Concomitant]
     Dosage: 1000 MG, 4X/DAY
     Route: 041
     Dates: end: 20130305
  6. MORPHINE [Concomitant]
     Dosage: 8 MG, AS NEEDED (MAXIMAL 6X/24H)
     Route: 058
     Dates: start: 20130227
  7. SINTROM [Concomitant]
     Dosage: 1 DF, 1X/DAY
     Route: 048
  8. APROVEL [Concomitant]
     Dosage: 2 DF, 1X/DAY
     Route: 048
     Dates: start: 20130222
  9. BELOC [Concomitant]
     Dosage: 1 DF, 1X/DAY
     Route: 048
     Dates: start: 20130222
  10. CLEXANE [Concomitant]
     Dosage: 40 MG, 1X/DAY
     Route: 058
     Dates: start: 20130222
  11. ZYLORIC [Concomitant]
     Dosage: 100 MG, 1X/DAY
     Route: 048
     Dates: start: 20130222
  12. TOREM [Concomitant]
     Dosage: 15 MG, 1X/DAY
     Route: 048
     Dates: start: 20130225
  13. LASIX [Concomitant]
     Dosage: 40 MG, AS NEEDED
     Route: 040
     Dates: start: 20130304
  14. KONAKION [Concomitant]
     Dosage: 10 MG, 3/WEEKY
     Route: 040
     Dates: start: 20130304
  15. CALCIMAGON-D3 [Concomitant]
     Dosage: 1 DF, 2X/DAY
     Route: 048
     Dates: start: 20130305

REACTIONS (4)
  - Confusional state [Recovering/Resolving]
  - Muscle contractions involuntary [Recovering/Resolving]
  - Tremor [Recovering/Resolving]
  - Disorientation [Recovering/Resolving]
